FAERS Safety Report 11723303 (Version 1)
Quarter: 2015Q4

REPORT INFORMATION
  Report Type: Spontaneous
  Country: FR (occurrence: FR)
  Receive Date: 20151111
  Receipt Date: 20151111
  Transmission Date: 20160304
  Serious: Yes (Life-Threatening, Other)
  Sender: FDA-Public Use
  Company Number: FR-GLAXOSMITHKLINE-B1029129A

PATIENT
  Age: 73 Year
  Sex: Female

DRUGS (2)
  1. LAMICTAL [Suspect]
     Active Substance: LAMOTRIGINE
     Indication: AFFECTIVE DISORDER
     Dosage: UNK, Z
     Route: 048
     Dates: start: 20140707, end: 20140729
  2. LAMICTAL [Suspect]
     Active Substance: LAMOTRIGINE
     Indication: DELUSIONAL DISORDER, UNSPECIFIED TYPE

REACTIONS (18)
  - Stevens-Johnson syndrome [Recovered/Resolved]
  - Rash pruritic [Recovered/Resolved]
  - Toxic skin eruption [Recovered/Resolved]
  - Hepatocellular injury [Recovered/Resolved]
  - Rash generalised [Recovered/Resolved]
  - Cholestasis [Recovered/Resolved]
  - Conjunctival adhesion [Recovered/Resolved]
  - Eyelid oedema [Recovered/Resolved]
  - Face oedema [Recovered/Resolved]
  - Cheilitis [Recovered/Resolved]
  - Liver function test abnormal [Recovered/Resolved]
  - Blepharitis [Recovered/Resolved]
  - Conjunctivitis [Recovered/Resolved]
  - Pharyngitis [Recovered/Resolved]
  - Dysphagia [Recovered/Resolved]
  - Parotitis [Recovered/Resolved]
  - Oropharyngeal discomfort [Recovered/Resolved]
  - Skin necrosis [Recovered/Resolved]

NARRATIVE: CASE EVENT DATE: 2014
